FAERS Safety Report 18501789 (Version 1)
Quarter: 2020Q4

REPORT INFORMATION
  Report Type: Spontaneous
  Country: US (occurrence: US)
  Receive Date: 20201113
  Receipt Date: 20201113
  Transmission Date: 20210114
  Serious: Yes (Other)
  Sender: FDA-Public Use
  Company Number: US-TEVA-2020-US-1847542

PATIENT
  Age: 89 Year
  Sex: Female

DRUGS (6)
  1. PROAIR RESPICLICK [Suspect]
     Active Substance: ALBUTEROL SULFATE
  2. CLOPIDOGREL [Concomitant]
     Active Substance: CLOPIDOGREL BISULFATE
  3. ATORVASTATIN [Concomitant]
     Active Substance: ATORVASTATIN
  4. PROAIR RESPICLICK [Suspect]
     Active Substance: ALBUTEROL SULFATE
  5. METOPROLOL. [Concomitant]
     Active Substance: METOPROLOL
  6. LOSARTAN. [Concomitant]
     Active Substance: LOSARTAN

REACTIONS (5)
  - Fall [Unknown]
  - Hip surgery [Unknown]
  - Cough [Unknown]
  - Wrong technique in product usage process [Unknown]
  - Device dispensing error [Unknown]
